FAERS Safety Report 5751065-6 (Version None)
Quarter: 2008Q2

REPORT INFORMATION
  Report Type: 
  Country: None (occurrence: None)
  Receive Date: 20080528
  Receipt Date: 20080528
  Transmission Date: 20081010
  Serious: Yes (Hospitalization)
  Sender: FDA-Public Use
  Company Number: TW-WYE-H03649408

PATIENT
  Sex: Male
  Weight: 64 kg

DRUGS (5)
  1. SIROLIMUS [Suspect]
     Indication: PROPHYLAXIS AGAINST TRANSPLANT REJECTION
     Route: 048
     Dates: start: 20080403, end: 20080415
  2. PREDNISOLONE [Concomitant]
     Indication: RENAL TRANSPLANT
     Route: 048
     Dates: start: 20070917
  3. TACROLIMUS [Concomitant]
     Indication: RENAL TRANSPLANT
     Dosage: DOSE AND FREQUENCY NOT SPECIFIED
     Route: 048
     Dates: start: 20070917, end: 20080416
  4. TACROLIMUS [Concomitant]
     Route: 048
     Dates: start: 20080417
  5. MYCOPHENOLATE MOFETIL [Concomitant]
     Indication: RENAL TRANSPLANT
     Route: 048
     Dates: start: 20080403, end: 20080417

REACTIONS (3)
  - LEUKOPENIA [None]
  - PHARYNGOLARYNGEAL PAIN [None]
  - PYREXIA [None]
